FAERS Safety Report 16756743 (Version 1)
Quarter: 2019Q3

REPORT INFORMATION
  Report Type: Spontaneous
  Country: US (occurrence: US)
  Receive Date: 20190711
  Receipt Date: 20190711
  Transmission Date: 20191005
  Serious: Yes (Hospitalization)
  Sender: FDA-Public Use
  Company Number: None

PATIENT
  Age: 52 Year
  Sex: Female

DRUGS (7)
  1. ENBREL [Suspect]
     Active Substance: ETANERCEPT
     Dosage: ?          OTHER DOSE:1 PEN;?
     Route: 058
     Dates: start: 20190620
  2. CYCLOBENZAPR TAB [Concomitant]
  3. METHOTREXATE. [Concomitant]
     Active Substance: METHOTREXATE
  4. HYDROCO/APAP TAB [Concomitant]
  5. LYRICA CAP [Concomitant]
  6. METHYLPRED TAB [Concomitant]
  7. BACLOFEN TAB [Concomitant]

REACTIONS (1)
  - Spinal operation [None]

NARRATIVE: CASE EVENT DATE: 201906
